FAERS Safety Report 19905190 (Version 1)
Quarter: 2021Q4

REPORT INFORMATION
  Report Type: Spontaneous
  Country: DE (occurrence: DE)
  Receive Date: 20211001
  Receipt Date: 20211001
  Transmission Date: 20220303
  Serious: Yes (Death)
  Sender: FDA-Public Use
  Company Number: DE-DCGMA-21189895

PATIENT
  Age: 53 Year
  Sex: Male
  Weight: 92 kg

DRUGS (1)
  1. SILDENAFIL [Suspect]
     Active Substance: SILDENAFIL
     Indication: Product used for unknown indication
     Dosage: 50 MILLIGRAM
     Route: 048

REACTIONS (1)
  - Aortic dissection rupture [Fatal]

NARRATIVE: CASE EVENT DATE: 20210425
